FAERS Safety Report 23677667 (Version 1)
Quarter: 2024Q1

REPORT INFORMATION
  Report Type: Report from Study
  Country: US (occurrence: US)
  Receive Date: 20240327
  Receipt Date: 20240327
  Transmission Date: 20240410
  Serious: Yes (Other)
  Sender: FDA-Public Use
  Company Number: US-BEH-2024168954

PATIENT
  Age: 81 Year
  Sex: Female
  Weight: 50.794 kg

DRUGS (1)
  1. ZEMAIRA [Suspect]
     Active Substance: .ALPHA.1-PROTEINASE INHIBITOR HUMAN
     Indication: Alpha-1 antitrypsin deficiency
     Dosage: UNK
     Route: 065

REACTIONS (5)
  - Cough [Recovering/Resolving]
  - Sputum increased [Recovering/Resolving]
  - Atrial fibrillation [Recovering/Resolving]
  - Dehydration [Recovering/Resolving]
  - Fall [Recovering/Resolving]
